FAERS Safety Report 16938831 (Version 1)
Quarter: 2019Q4

REPORT INFORMATION
  Report Type: Spontaneous
  Country: US (occurrence: US)
  Receive Date: 20190828
  Receipt Date: 20190828
  Transmission Date: 20200122
  Serious: No
  Sender: FDA-Public Use
  Company Number: None

PATIENT
  Age: 59 Year
  Sex: Male

DRUGS (1)
  1. EPCLUSA [Suspect]
     Active Substance: SOFOSBUVIR\VELPATASVIR
     Route: 048

REACTIONS (5)
  - Joint injury [None]
  - Limb injury [None]
  - Swelling [None]
  - Pain [None]
  - Road traffic accident [None]

NARRATIVE: CASE EVENT DATE: 20190814
